FAERS Safety Report 6900122-7 (Version None)
Quarter: 2010Q3

REPORT INFORMATION
  Report Type: 
  Country: None (occurrence: None)
  Receive Date: 20100708
  Receipt Date: 20100403
  Transmission Date: 20110219
  Serious: Yes (Other)
  Sender: FDA-Public Use
  Company Number: 2010042626

PATIENT
  Age: 35 Year
  Sex: Male
  Weight: 90.7 kg

DRUGS (3)
  1. CHANTIX [Suspect]
     Dosage: ORAL
     Route: 048
     Dates: start: 20100301, end: 20100101
  2. ATENOLOL [Concomitant]
  3. OXYCODONE HCL [Concomitant]

REACTIONS (1)
  - CONVULSION [None]
